FAERS Safety Report 8724851 (Version 2)
Quarter: 2015Q2

REPORT INFORMATION
  Report Type: Report from Study
  Country: US (occurrence: US)
  Receive Date: 20120815
  Receipt Date: 20150625
  Transmission Date: 20150821
  Serious: Yes (Hospitalization)
  Sender: FDA-Public Use
  Company Number: US-ROCHE-1100463

PATIENT
  Age: 45 Year
  Sex: Male

DRUGS (12)
  1. PERSANTINE [Concomitant]
     Active Substance: DIPYRIDAMOLE
     Route: 065
  2. ACETAMINOPHEN. [Concomitant]
     Active Substance: ACETAMINOPHEN
  3. PERCOCET [Concomitant]
     Active Substance: ACETAMINOPHEN\OXYCODONE HYDROCHLORIDE
  4. ACTIVASE [Suspect]
     Active Substance: ALTEPLASE
     Indication: ACUTE MYOCARDIAL INFARCTION
     Dosage: 2-50 MG
     Route: 042
  5. BOROFAX [Concomitant]
  6. BENADRYL [Concomitant]
     Active Substance: DIPHENHYDRAMINE HYDROCHLORIDE
  7. CARDIZEM [Concomitant]
     Active Substance: DILTIAZEM HYDROCHLORIDE
     Route: 065
  8. ASPIRIN. [Concomitant]
     Active Substance: ASPIRIN
     Route: 065
  9. NITROSTAT [Concomitant]
     Active Substance: NITROGLYCERIN
  10. LIDOCAINE. [Concomitant]
     Active Substance: LIDOCAINE
  11. PROMETHAZINE [Concomitant]
     Active Substance: PROMETHAZINE\PROMETHAZINE HYDROCHLORIDE
  12. MEPERIDINE [Concomitant]
     Active Substance: MEPERIDINE

REACTIONS (5)
  - Hypotension [Unknown]
  - Ventricular tachycardia [Unknown]
  - Bradycardia [Unknown]
  - Presyncope [Unknown]
  - Epigastric discomfort [Unknown]
